FAERS Safety Report 6288235-7 (Version None)
Quarter: 2009Q3

REPORT INFORMATION
  Report Type: 
  Country: None (occurrence: None)
  Receive Date: 20090729
  Receipt Date: 20070524
  Transmission Date: 20100115
  Serious: Yes (Hospitalization)
  Sender: FDA-Public Use
  Company Number: US-ASTRAZENECA-2006UW12200

PATIENT
  Age: 444 Month
  Sex: Female
  Weight: 112.5 kg

DRUGS (16)
  1. SEROQUEL [Suspect]
     Dosage: 100 MG TO 25 MG (TAPERING DOSE) DAILY
     Route: 048
     Dates: start: 19990629
  2. SEROQUEL [Suspect]
     Route: 048
     Dates: start: 20010101
  3. ZYPREXA [Suspect]
     Dates: start: 20040401
  4. ABILIFY [Concomitant]
  5. HALDOL [Concomitant]
  6. RISPERDAL [Concomitant]
  7. STELAZINE [Concomitant]
     Dates: start: 19980101
  8. ZOLOFT [Concomitant]
     Dosage: 50 MG TO 100 MG DAILY
     Route: 048
     Dates: start: 19990608
  9. VISTARIL [Concomitant]
     Route: 048
     Dates: start: 19990608
  10. TRAZODONE [Concomitant]
     Route: 048
     Dates: start: 19991004
  11. ACETAZOLAMIDE [Concomitant]
     Route: 048
     Dates: start: 20040127
  12. DEPAKOTE [Concomitant]
     Route: 048
     Dates: start: 20040215
  13. LORAZEPAM [Concomitant]
     Route: 048
     Dates: start: 20040514
  14. CELEBREX [Concomitant]
     Route: 048
     Dates: start: 20040526
  15. FUROSEMIDE [Concomitant]
     Route: 048
     Dates: start: 20040604
  16. BENZTROPINE [Concomitant]
     Route: 048
     Dates: start: 20040708

REACTIONS (6)
  - BIPOLAR I DISORDER [None]
  - DIABETES MELLITUS [None]
  - GLUCOSE TOLERANCE IMPAIRED [None]
  - HYPERGLYCAEMIA [None]
  - HYPOGLYCAEMIA [None]
  - MENTAL DISORDER [None]
